FAERS Safety Report 8310526-6 (Version None)
Quarter: 2012Q2

REPORT INFORMATION
  Report Type: 
  Country: None (occurrence: None)
  Receive Date: 20120425
  Receipt Date: 20120420
  Transmission Date: 20120825
  Serious: Yes (Hospitalization)
  Sender: FDA-Public Use
  Company Number: US-GILEAD-2012-0053964

PATIENT
  Sex: Male

DRUGS (2)
  1. KEPPRA [Concomitant]
  2. LETAIRIS [Suspect]
     Indication: PRODUCT USED FOR UNKNOWN INDICATION
     Dosage: 10 MG, UNK
     Route: 048
     Dates: start: 20110927

REACTIONS (4)
  - OEDEMA [None]
  - CONVULSION [None]
  - SWELLING [None]
  - MENTAL STATUS CHANGES [None]
